FAERS Safety Report 20922561 (Version 2)
Quarter: 2022Q4

REPORT INFORMATION
  Report Type: Other
  Country: CA (occurrence: None)
  Receive Date: 20220607
  Receipt Date: 20221212
  Transmission Date: 20230113
  Serious: Yes (Hospitalization, Other)
  Sender: FDA-Public Use
  Company Number: CA-ROCHE-2909380

PATIENT
  Age: 59 Year
  Sex: Female

DRUGS (11)
  1. OCREVUS [Suspect]
     Active Substance: OCRELIZUMAB
     Indication: Relapsing-remitting multiple sclerosis
     Dosage: CONCENTRATE FOR INTRAVENOUS INFUSION?300 MG AT DAY 0 AND 14, THEN 600 MG EVERY 6 MONTH
     Route: 042
     Dates: start: 20210512
  2. RAMIPRIL [Concomitant]
     Active Substance: RAMIPRIL
     Dates: start: 202107
  3. AMLODIPINE [Concomitant]
     Active Substance: AMLODIPINE BESYLATE
     Dates: start: 202107
  4. BISOPROLOL [Concomitant]
     Active Substance: BISOPROLOL
     Dates: start: 202107
  5. CLONAZEPAM [Concomitant]
     Active Substance: CLONAZEPAM
     Dates: start: 202110
  6. BUPROPION [Concomitant]
     Active Substance: BUPROPION
     Dates: start: 202107
  7. DULOXETINE [Concomitant]
     Active Substance: DULOXETINE
  8. ZOPICLONE [Concomitant]
     Active Substance: ZOPICLONE
  9. MIRTAZAPINE [Concomitant]
     Active Substance: MIRTAZAPINE
     Dates: start: 202110
  10. ROSUVASTATIN [Concomitant]
     Active Substance: ROSUVASTATIN
  11. BACLOFEN [Concomitant]
     Active Substance: BACLOFEN

REACTIONS (20)
  - Blood pressure decreased [Recovered/Resolved]
  - Muscle twitching [Not Recovered/Not Resolved]
  - Depression [Recovered/Resolved]
  - Paraesthesia [Not Recovered/Not Resolved]
  - Hypertension [Not Recovered/Not Resolved]
  - Dizziness [Recovered/Resolved]
  - Hypoaesthesia [Not Recovered/Not Resolved]
  - Pain in extremity [Not Recovered/Not Resolved]
  - Back pain [Not Recovered/Not Resolved]
  - Headache [Recovering/Resolving]
  - Vertigo [Not Recovered/Not Resolved]
  - Asthenia [Not Recovered/Not Resolved]
  - Muscle spasms [Not Recovered/Not Resolved]
  - Diabetes mellitus [Unknown]
  - Fatigue [Not Recovered/Not Resolved]
  - Multiple sclerosis [Unknown]
  - Herpes zoster [Not Recovered/Not Resolved]
  - Pain [Unknown]
  - White blood cell count increased [Unknown]
  - Fall [Unknown]

NARRATIVE: CASE EVENT DATE: 20220528
